FAERS Safety Report 16877478 (Version 2)
Quarter: 2019Q4

REPORT INFORMATION
  Report Type: Spontaneous
  Country: US (occurrence: US)
  Receive Date: 20191002
  Receipt Date: 20191223
  Transmission Date: 20200122
  Serious: Yes (Hospitalization, Other)
  Sender: FDA-Public Use
  Company Number: US-009507513-1909USA014137

PATIENT
  Age: 62 Year
  Sex: Female

DRUGS (3)
  1. KEYTRUDA [Suspect]
     Active Substance: PEMBROLIZUMAB
     Indication: RENAL CANCER STAGE IV
     Dosage: UNK
     Dates: start: 20190828
  2. KEYTRUDA [Suspect]
     Active Substance: PEMBROLIZUMAB
     Indication: METASTASES TO CENTRAL NERVOUS SYSTEM
  3. INLYTA [Suspect]
     Active Substance: AXITINIB
     Dosage: 5 MILLIGRAM, TWICE DAILY
     Route: 048
     Dates: start: 20190828, end: 20190920

REACTIONS (7)
  - Flank pain [Unknown]
  - Acute kidney injury [Unknown]
  - Renal tubular necrosis [Unknown]
  - Renal mass [Unknown]
  - Fatigue [Unknown]
  - Blood creatinine increased [Unknown]
  - Seizure [Unknown]

NARRATIVE: CASE EVENT DATE: 2019
